FAERS Safety Report 8932229 (Version 1)
Quarter: 2012Q4

REPORT INFORMATION
  Report Type: 
  Country: US (occurrence: US)
  Receive Date: 20121128
  Receipt Date: 20121128
  Transmission Date: 20130627
  Serious: No
  Sender: FDA-Public Use
  Company Number: US-BAYER-2012-123495

PATIENT
  Age: 49 Year
  Sex: Female
  Weight: 58.96 kg

DRUGS (1)
  1. ALEVE CAPLET/TABLET,MIDOL EXTENDED RELIEF CAPLET [Suspect]
     Indication: HEADACHE NOS
     Dosage: 1 DF, UNK
     Route: 048
     Dates: start: 20121118, end: 20121118

REACTIONS (2)
  - Medication error [None]
  - Drug ineffective [None]
